FAERS Safety Report 15976708 (Version 2)
Quarter: 2019Q2

REPORT INFORMATION
  Report Type: Spontaneous
  Country: US (occurrence: US)
  Receive Date: 20190218
  Receipt Date: 20190401
  Transmission Date: 20190711
  Serious: Yes (Hospitalization)
  Sender: FDA-Public Use
  Company Number: US-BAYER-2019-033997

PATIENT
  Age: 60 Year
  Sex: Female

DRUGS (1)
  1. BETASERON [Suspect]
     Active Substance: INTERFERON BETA-1B
     Indication: MULTIPLE SCLEROSIS
     Dosage: 0.3 MG
     Dates: start: 201807

REACTIONS (4)
  - Thyroid cancer [None]
  - Breast cancer [None]
  - Injection site mass [None]
  - Injection site pain [None]

NARRATIVE: CASE EVENT DATE: 201812
